FAERS Safety Report 17457391 (Version 3)
Quarter: 2020Q1

REPORT INFORMATION
  Report Type: Report from Study
  Country: None (occurrence: NL)
  Receive Date: 20200225
  Receipt Date: 20200317
  Transmission Date: 20200409
  Serious: Yes (Hospitalization, Other)
  Sender: FDA-Public Use
  Company Number: NL-ABBVIE-16P-114-1809733-00

PATIENT
  Age: 64 Year
  Sex: Male

DRUGS (10)
  1. ASCAL [Concomitant]
     Indication: ANTICOAGULANT THERAPY
     Route: 048
     Dates: start: 20040909
  2. HUMIRA [Suspect]
     Active Substance: ADALIMUMAB
     Indication: COLITIS ULCERATIVE
     Route: 058
     Dates: start: 20120706
  3. METOCLOPRAMIDE. [Concomitant]
     Active Substance: METOCLOPRAMIDE
     Indication: COLITIS ULCERATIVE
     Route: 048
     Dates: start: 20160322
  4. RABEPRAZOL [Concomitant]
     Active Substance: RABEPRAZOLE
     Indication: PROPHYLAXIS
  5. AMITRIPTYLINE [Concomitant]
     Active Substance: AMITRIPTYLINE
     Indication: ABDOMINAL PAIN
     Route: 048
     Dates: start: 20140227
  6. CODIOVAN [Concomitant]
     Active Substance: HYDROCHLOROTHIAZIDE\VALSARTAN
     Indication: HYPERTENSION
     Dosage: 160 + 25 MG
     Route: 048
     Dates: start: 20040909
  7. RABEPRAZOL [Concomitant]
     Active Substance: RABEPRAZOLE
     Indication: HYPERCHLORHYDRIA
     Route: 048
     Dates: start: 20120921
  8. ACETYLSALICYLZUUR [Concomitant]
     Active Substance: ASPIRIN
     Indication: ANTICOAGULANT THERAPY
     Route: 048
     Dates: start: 20111109
  9. TEMAZEPAM. [Concomitant]
     Active Substance: TEMAZEPAM
     Indication: STRESS
     Route: 048
     Dates: start: 20160620
  10. MOVICOLON [Concomitant]
     Active Substance: POLYETHYLENE GLYCOL 3350\POTASSIUM CHLORIDE\SODIUM BICARBONATE\SODIUM CHLORIDE
     Indication: DYSCHEZIA
     Route: 048
     Dates: start: 20150921

REACTIONS (1)
  - Coeliac artery stenosis [Recovered/Resolved]

NARRATIVE: CASE EVENT DATE: 20160719
